FAERS Safety Report 5128263-8 (Version None)
Quarter: 2006Q4

REPORT INFORMATION
  Report Type: 
  Country: None (occurrence: None)
  Receive Date: 20061011
  Receipt Date: 20060922
  Transmission Date: 20070319
  Serious: No
  Sender: FDA-Public Use
  Company Number: US200601005166

PATIENT
  Age: 51 Year
  Sex: Male
  Weight: 111.1 kg

DRUGS (1)
  1. ZYPREXA [Suspect]
     Indication: BIPOLAR DISORDER
     Dosage: 2.5 + 10 + 20MG, UNKNOWN, UNK
     Dates: start: 20001030

REACTIONS (7)
  - ARTHRALGIA [None]
  - DIABETES MELLITUS NON-INSULIN-DEPENDENT [None]
  - DYSURIA [None]
  - HAEMATURIA [None]
  - HYPERCHOLESTEROLAEMIA [None]
  - LOW DENSITY LIPOPROTEIN INCREASED [None]
  - WEIGHT INCREASED [None]
